FAERS Safety Report 7918825-4 (Version None)
Quarter: 2011Q4

REPORT INFORMATION
  Report Type: 
  Country: None (occurrence: None)
  Receive Date: 20111116
  Receipt Date: 20111103
  Transmission Date: 20120403
  Serious: Yes (Hospitalization, Other)
  Sender: FDA-Public Use
  Company Number: PHHY2011CH098470

PATIENT
  Age: 63 Year
  Sex: Male

DRUGS (11)
  1. SINTROM [Interacting]
     Indication: ATRIAL FLUTTER
     Dosage: UNK
     Route: 048
     Dates: start: 20110817, end: 20110921
  2. NOVOLOG MIX 70/30 [Concomitant]
  3. INSULATARD NPH HUMAN [Concomitant]
  4. CRESTOR [Interacting]
     Dosage: 10 MG, UNK
     Route: 048
  5. TORSEMIDE [Concomitant]
     Dosage: 40 MG, DAILY DOSE
     Route: 048
  6. METOPROLOL SUCCINATE [Concomitant]
     Dosage: 50 MG, DAILY
     Route: 048
  7. SINTROM [Interacting]
     Indication: ATRIAL FIBRILLATION
     Dosage: 3 MG, DAILY
     Route: 048
     Dates: start: 20110815, end: 20110816
  8. CORDARONE [Interacting]
     Dosage: 200 MG, DAILY
     Route: 048
  9. CIPRO [Suspect]
     Indication: BACTERIAL INFECTION
     Dosage: 1000 MG, DAILY DOSE
     Route: 048
     Dates: start: 20110810, end: 20110922
  10. ENALAPRIL MALEATE [Concomitant]
     Dosage: 10 MG, DAILY
     Route: 048
  11. ASPIRIN [Interacting]
     Dosage: 100 MG, DAILY DOSE
     Route: 048

REACTIONS (10)
  - DRUG INTERACTION [None]
  - ASTHENIA [None]
  - HYPOCHROMIC ANAEMIA [None]
  - INTERNATIONAL NORMALISED RATIO INCREASED [None]
  - PALLOR [None]
  - SEPSIS [None]
  - VOMITING [None]
  - GASTROINTESTINAL HAEMORRHAGE [None]
  - RENAL FAILURE CHRONIC [None]
  - MALAISE [None]
